FAERS Safety Report 8465865-5 (Version None)
Quarter: 2012Q2

REPORT INFORMATION
  Report Type: 
  Country: None (occurrence: None)
  Receive Date: 20120626
  Receipt Date: 20120618
  Transmission Date: 20120825
  Serious: Yes (Death, Hospitalization)
  Sender: FDA-Public Use
  Company Number: US-PFIZER INC-2012148525

PATIENT
  Age: 32 Year
  Sex: Male

DRUGS (9)
  1. DIAZEPAM [Suspect]
     Dosage: UNK
  2. KEPPRA [Suspect]
     Dosage: UNK
  3. OXYCODONE HCL [Suspect]
     Dosage: UNK
  4. TEMAZEPAM [Suspect]
     Dosage: UNK
  5. PREGABALIN [Suspect]
     Dosage: UNK
  6. MIRTAZAPINE [Suspect]
     Dosage: UNK
  7. OXYMORPHONE [Suspect]
     Dosage: UNK
  8. OXAZEPAM [Suspect]
     Dosage: UNK
  9. TRAZODONE HCL [Suspect]
     Dosage: UNK

REACTIONS (1)
  - TOXICITY TO VARIOUS AGENTS [None]
